FAERS Safety Report 10017913 (Version 1)
Quarter: 2014Q1

REPORT INFORMATION
  Report Type: Spontaneous
  Country: US (occurrence: US)
  Receive Date: 20140318
  Receipt Date: 20140318
  Transmission Date: 20141002
  Serious: No
  Sender: FDA-Public Use
  Company Number: US-BRISTOL-MYERS SQUIBB COMPANY-18867697

PATIENT
  Age: 60 Year
  Sex: Male
  Weight: 134.69 kg

DRUGS (3)
  1. ERBITUX [Suspect]
     Indication: COLORECTAL CANCER METASTATIC
     Dates: start: 20130430
  2. CAMPTOSAR [Concomitant]
  3. IRINOTECAN [Concomitant]

REACTIONS (1)
  - Rash [Unknown]
